FAERS Safety Report 4697527-4 (Version None)
Quarter: 2005Q2

REPORT INFORMATION
  Report Type: 
  Country: None (occurrence: None)
  Receive Date: 20050622
  Receipt Date: 20050616
  Transmission Date: 20051028
  Serious: Yes (Hospitalization, Disabling)
  Sender: FDA-Public Use
  Company Number: US-MERCK-0506USA02524

PATIENT
  Age: 84 Year
  Sex: Female

DRUGS (1)
  1. MEVACOR [Suspect]
     Indication: BLOOD CHOLESTEROL INCREASED
     Route: 048
     Dates: end: 20050601

REACTIONS (2)
  - LOSS OF CONTROL OF LEGS [None]
  - URINARY TRACT INFECTION [None]
